FAERS Safety Report 8553859-0 (Version None)
Quarter: 2012Q3

REPORT INFORMATION
  Report Type: 
  Country: None (occurrence: None)
  Receive Date: 20120731
  Receipt Date: 20080527
  Transmission Date: 20120928
  Serious: Yes (Other)
  Sender: FDA-Public Use
  Company Number: CO-PFIZER INC-2012181145

PATIENT
  Age: 58 Year
  Sex: Female

DRUGS (6)
  1. GLIBENCLAMIDE [Concomitant]
     Dosage: 5 MG, TWICE DAILY
  2. METHOCARBAMOL [Concomitant]
     Dosage: 750 MG, TWICE DAILY
  3. ACETYLSALICYLIC ACID [Concomitant]
     Dosage: 100 MG, ONCE DAILY
  4. LIPITOR [Suspect]
     Indication: DYSLIPIDAEMIA
     Dosage: 10 MG, ONCE DIALY
  5. VERAPAMIL [Concomitant]
     Dosage: 120 MG, TWICE DAILY
  6. OLMESARTAN MEDOXOMIL [Suspect]
     Indication: HYPERTENSION
     Dosage: 20 MG, ONCE DAILY

REACTIONS (2)
  - HYPERTENSIVE EMERGENCY [None]
  - MYALGIA [None]
